FAERS Safety Report 24008434 (Version 1)
Quarter: 2024Q2

REPORT INFORMATION
  Report Type: Spontaneous
  Country: US (occurrence: US)
  Receive Date: 20240625
  Receipt Date: 20240625
  Transmission Date: 20240717
  Serious: No
  Sender: FDA-Public Use
  Company Number: US-BRISTOL-MYERS SQUIBB COMPANY-2024-100988

PATIENT
  Age: 64 Year
  Sex: Female

DRUGS (13)
  1. OPDIVO [Suspect]
     Active Substance: NIVOLUMAB
     Indication: Lung neoplasm malignant
     Dosage: DOSE : 480MG;     FREQ : EVERY 4 WEEKS
  2. ASPIRIN [Concomitant]
     Active Substance: ASPIRIN
     Indication: Lung neoplasm malignant
  3. CALCIUM [Concomitant]
     Active Substance: CALCIUM
     Indication: Lung neoplasm malignant
  4. CLOBETASOL [Concomitant]
     Active Substance: CLOBETASOL
     Indication: Lung neoplasm malignant
  5. DEXAMETHASONE [Concomitant]
     Active Substance: DEXAMETHASONE
     Indication: Lung neoplasm malignant
  6. FOLIC ACID [Concomitant]
     Active Substance: FOLIC ACID
     Indication: Lung neoplasm malignant
  7. SYNTHROID [Concomitant]
     Active Substance: LEVOTHYROXINE SODIUM
     Indication: Lung neoplasm malignant
  8. ATIVAN [Concomitant]
     Active Substance: LORAZEPAM
     Indication: Lung neoplasm malignant
  9. OMEPRAZOLE [Concomitant]
     Active Substance: DONEPEZIL HYDROCHLORIDE\OMEPRAZOLE\OMEPRAZOLE MAGNESIUM
     Indication: Lung neoplasm malignant
  10. OXYCODONE [Concomitant]
     Active Substance: OXYCODONE\OXYCODONE HYDROCHLORIDE
     Indication: Lung neoplasm malignant
  11. KEYTRUDA [Concomitant]
     Active Substance: PEMBROLIZUMAB
     Indication: Lung neoplasm malignant
  12. ALIMTA [Concomitant]
     Active Substance: PEMETREXED DISODIUM
     Indication: Lung neoplasm malignant
  13. MIRALAX [Concomitant]
     Active Substance: POLYETHYLENE GLYCOL 3350
     Indication: Lung neoplasm malignant

REACTIONS (1)
  - Product dose omission issue [Unknown]

NARRATIVE: CASE EVENT DATE: 20240520
